FAERS Safety Report 8995710 (Version 1)
Quarter: 2013Q1

REPORT INFORMATION
  Report Type: Spontaneous
  Country: US (occurrence: US)
  Receive Date: 20130103
  Receipt Date: 20130103
  Transmission Date: 20140127
  Serious: No
  Sender: FDA-Public Use
  Company Number: US-ABBOTT-12P-163-0988509-00

PATIENT
  Age: 30 Year
  Sex: Female

DRUGS (3)
  1. SYNTHROID [Suspect]
     Indication: HYPOTHYROIDISM
     Dates: start: 201205
  2. BIRTH CONTROL [Concomitant]
     Indication: CONTRACEPTION
  3. BOWEL PREP [Concomitant]
     Indication: COLONOSCOPY
     Dates: start: 201209, end: 201209

REACTIONS (1)
  - Coeliac disease [Not Recovered/Not Resolved]
